FAERS Safety Report 12936118 (Version 2)
Quarter: 2017Q2

REPORT INFORMATION
  Report Type: Spontaneous
  Country: AU (occurrence: AU)
  Receive Date: 20161114
  Receipt Date: 20170526
  Transmission Date: 20170830
  Serious: Yes (Other)
  Sender: FDA-Public Use
  Company Number: AU-009507513-1611AUS002860

PATIENT
  Sex: Male

DRUGS (4)
  1. OCTREOTIDE. [Suspect]
     Active Substance: OCTREOTIDE
     Dosage: MONTHLY LONG ACTING OCTREOTIDE
  2. DIAZOXIDE [Suspect]
     Active Substance: DIAZOXIDE
     Indication: HYPERINSULINAEMIC HYPOGLYCAEMIA
     Dosage: MAXIMAL DOSES OF DIAZOXIDE
     Route: 048
  3. OCTREOTIDE. [Suspect]
     Active Substance: OCTREOTIDE
     Indication: HYPERINSULINAEMIC HYPOGLYCAEMIA
     Dosage: MAXIMAL DOSES OF OCTREOTIDE
  4. OCTREOTIDE. [Suspect]
     Active Substance: OCTREOTIDE
     Dosage: UNK, QD
     Route: 058

REACTIONS (2)
  - Drug ineffective [Unknown]
  - Hyperinsulinaemic hypoglycaemia [Unknown]
